FAERS Safety Report 6805997-8 (Version None)
Quarter: 2010Q2

REPORT INFORMATION
  Report Type: 
  Country: None (occurrence: None)
  Receive Date: 20100629
  Receipt Date: 20080103
  Transmission Date: 20101027
  Serious: No
  Sender: FDA-Public Use
  Company Number: US-PFIZER INC-2007095020

PATIENT
  Sex: Male
  Weight: 84.09 kg

DRUGS (1)
  1. VIAGRA [Suspect]
     Indication: ERECTILE DYSFUNCTION
     Dates: end: 20070901

REACTIONS (5)
  - CYANOPSIA [None]
  - DRUG INEFFECTIVE [None]
  - DYSGEUSIA [None]
  - NASAL CONGESTION [None]
  - NAUSEA [None]
